FAERS Safety Report 8799643 (Version 3)
Quarter: 2012Q4

REPORT INFORMATION
  Report Type: 
  Country: JP (occurrence: JP)
  Receive Date: 20120919
  Receipt Date: 20121116
  Transmission Date: 20130627
  Serious: Yes (Other)
  Sender: FDA-Public Use
  Company Number: JP-009507513-1209JPN005754

PATIENT
  Age: 27 Year
  Sex: Female

DRUGS (9)
  1. REMERON TABLETS 15MG [Suspect]
     Indication: DEPRESSION
     Dosage: 15 mg, qd
     Route: 048
     Dates: start: 20120329, end: 20120402
  2. REMERON TABLETS 15MG [Suspect]
     Dosage: 30 mg, qd
     Route: 048
     Dates: start: 20120402, end: 20120625
  3. LUVOX [Concomitant]
     Indication: DEPRESSION
     Dosage: 100 mg, qd
     Route: 048
     Dates: start: 20101001, end: 20110203
  4. LUVOX [Concomitant]
     Dosage: 125 mg, qd
     Route: 048
     Dates: start: 20110203, end: 20120611
  5. LUVOX [Concomitant]
     Dosage: 100 mg, qd
     Route: 048
     Dates: start: 20120611
  6. AMOBAN [Concomitant]
     Indication: INSOMNIA
     Dosage: 10 mg, qd
     Route: 048
     Dates: start: 20120206, end: 20120813
  7. SILECE [Concomitant]
     Indication: INSOMNIA
     Dosage: 2 mg, qd
     Route: 048
     Dates: start: 20110519, end: 20120528
  8. SILECE [Concomitant]
     Dosage: 2 mg, qd
     Route: 048
     Dates: start: 20120611
  9. DORAL [Concomitant]
     Indication: INSOMNIA
     Dosage: 20 mg, qd
     Route: 048
     Dates: start: 20120528, end: 20120611

REACTIONS (1)
  - Somnambulism [Recovered/Resolved]
